FAERS Safety Report 24028144 (Version 1)
Quarter: 2024Q2

REPORT INFORMATION
  Report Type: Spontaneous
  Country: CN (occurrence: CN)
  Receive Date: 20240628
  Receipt Date: 20240628
  Transmission Date: 20240716
  Serious: No
  Sender: FDA-Public Use
  Company Number: CN-ALKEM LABORATORIES LIMITED-CN-ALKEM-2024-05115

PATIENT

DRUGS (4)
  1. CLOPIDOGREL [Suspect]
     Active Substance: CLOPIDOGREL BISULFATE
     Indication: Ischaemic stroke
     Dosage: 300 MILLIGRAM, OD
     Route: 048
  2. CLOPIDOGREL [Suspect]
     Active Substance: CLOPIDOGREL BISULFATE
     Indication: Transient ischaemic attack
     Dosage: 75 MILLIGRAM, OD
     Route: 048
  3. INDOBUFEN [Suspect]
     Active Substance: INDOBUFEN
     Indication: Ischaemic stroke
     Dosage: 100 MILLIGRAM, BID
     Route: 048
  4. INDOBUFEN [Suspect]
     Active Substance: INDOBUFEN
     Indication: Transient ischaemic attack

REACTIONS (1)
  - Hypersensitivity [Unknown]
